FAERS Safety Report 24249169 (Version 1)
Quarter: 2024Q3

REPORT INFORMATION
  Report Type: Spontaneous
  Country: CN (occurrence: CN)
  Receive Date: 20240826
  Receipt Date: 20240826
  Transmission Date: 20241016
  Serious: Yes (Life-Threatening, Hospitalization)
  Sender: PFIZER
  Company Number: CN-PFIZER INC-PV202400109296

PATIENT
  Age: 5 Year
  Sex: Male

DRUGS (2)
  1. CYTARABINE [Suspect]
     Active Substance: CYTARABINE
     Indication: Platelet count decreased
     Dosage: 74 MG, 1X/DAY
     Route: 041
     Dates: start: 20240813, end: 20240813
  2. VENETOCLAX [Concomitant]
     Active Substance: VENETOCLAX
     Indication: Chemotherapy
     Dosage: 74 MG, 1X/DAY
     Route: 048
     Dates: start: 20240813, end: 20240814

REACTIONS (1)
  - Acute hepatic failure [Unknown]

NARRATIVE: CASE EVENT DATE: 20240814
